FAERS Safety Report 25319739 (Version 1)
Quarter: 2025Q2

REPORT INFORMATION
  Report Type: Other
  Country: PL (occurrence: PL)
  Receive Date: 20250515
  Receipt Date: 20250515
  Transmission Date: 20250717
  Serious: Yes (Other)
  Sender: EMD SERONO INC
  Company Number: PL-Merck Healthcare KGaA-2025023429

PATIENT
  Age: 36 Year
  Sex: Male

DRUGS (2)
  1. LEVOTHYROXINE [Suspect]
     Active Substance: LEVOTHYROXINE
     Indication: Hypothyroidism
  2. TRAMADOL [Suspect]
     Active Substance: TRAMADOL
     Indication: Toothache

REACTIONS (1)
  - Serotonin syndrome [Unknown]
